FAERS Safety Report 15150870 (Version 1)
Quarter: 2018Q4

REPORT INFORMATION
  Report Type: Spontaneous
  Country: US (occurrence: US)
  Receive Date: 20180716
  Receipt Date: 20180716
  Transmission Date: 20190204
  Serious: No
  Sender: FDA-Public Use
  Company Number: US-SA-2018SA164285

PATIENT
  Sex: Female

DRUGS (31)
  1. HYDROXYCHLOROQUINE [Concomitant]
     Active Substance: HYDROXYCHLOROQUINE
     Indication: RHEUMATOID ARTHRITIS
     Dosage: 200 MG, HS
     Route: 065
  2. KEFLEX [CEFALEXIN] [Concomitant]
     Dosage: 4 DF, UNK
     Route: 065
  3. LEVOTHYROXIN [Concomitant]
     Active Substance: LEVOTHYROXINE
     Indication: THYROID MASS
     Dosage: 1 DF, QD
     Route: 065
     Dates: start: 20071114
  4. LOPRESSOR [Concomitant]
     Active Substance: METOPROLOL TARTRATE
     Dosage: 0.5 DF, QD
     Route: 065
  5. LIPITOR [Concomitant]
     Active Substance: ATORVASTATIN CALCIUM
     Dosage: 20 MG, UNK
     Route: 065
  6. LEVOTHYROXIN [Concomitant]
     Active Substance: LEVOTHYROXINE
     Dosage: 50 UG
  7. XELJANZ [Concomitant]
     Active Substance: TOFACITINIB CITRATE
     Indication: RHEUMATOID ARTHRITIS
     Dosage: 11 MG, QD
     Route: 065
  8. TYLENOL [Concomitant]
     Active Substance: ACETAMINOPHEN
     Indication: PAIN
     Dosage: 2 DF, Q6H
     Route: 065
  9. LOPRESSOR [Concomitant]
     Active Substance: METOPROLOL TARTRATE
     Dosage: 0.5 DF, BID
     Route: 065
  10. RANITIDINE. [Concomitant]
     Active Substance: RANITIDINE
     Dosage: 1 UNK, QD
     Route: 065
     Dates: start: 20140813
  11. PLAVIX [Suspect]
     Active Substance: CLOPIDOGREL BISULFATE
     Indication: TRANSIENT ISCHAEMIC ATTACK
     Dosage: 1 DF, HS
     Route: 065
     Dates: start: 20140805
  12. LIPITOR [Concomitant]
     Active Substance: ATORVASTATIN CALCIUM
     Dosage: 10 UNK
     Route: 065
     Dates: start: 20021023
  13. ORENCIA [Concomitant]
     Active Substance: ABATACEPT
     Dosage: 0.88 UNK, QW
     Route: 065
     Dates: start: 20140511, end: 20140721
  14. FOLIC ACID. [Concomitant]
     Active Substance: FOLIC ACID
     Dosage: 400 UG, QD
     Route: 065
  15. ARAVA [Concomitant]
     Active Substance: LEFLUNOMIDE
  16. HYDROXYCHLOROQUINE [Concomitant]
     Active Substance: HYDROXYCHLOROQUINE
     Indication: FELTY^S SYNDROME
  17. LISINOPRIL. [Concomitant]
     Active Substance: LISINOPRIL
     Dosage: 2.5 MG, QD
     Route: 065
     Dates: start: 20140918
  18. BIOTIN [Concomitant]
     Active Substance: BIOTIN
     Dosage: 1000 UG, QD
     Route: 065
     Dates: start: 20140512
  19. VIT E [TOCOPHEROL] [Concomitant]
     Dosage: 1000 IU, QD
     Route: 065
  20. PLAVIX [Suspect]
     Active Substance: CLOPIDOGREL BISULFATE
     Dosage: 0.5 DF, UNK
     Route: 065
     Dates: start: 20141031
  21. PREDNISONE. [Concomitant]
     Active Substance: PREDNISONE
     Indication: FELTY^S SYNDROME
  22. XELJANZ [Concomitant]
     Active Substance: TOFACITINIB CITRATE
     Indication: FELTY^S SYNDROME
  23. PREDNISONE. [Concomitant]
     Active Substance: PREDNISONE
     Indication: RHEUMATOID ARTHRITIS
     Dosage: 4 MG, UNK
     Route: 065
  24. LIPITOR [Concomitant]
     Active Substance: ATORVASTATIN CALCIUM
     Indication: HYPERCHOLESTEROLAEMIA
     Dosage: 40 MG, QD
     Route: 065
     Dates: start: 20110817
  25. LEVOTHYROXIN [Concomitant]
     Active Substance: LEVOTHYROXINE
     Dosage: 75 UG
     Dates: start: 20110825
  26. PRILOSEC [Interacting]
     Active Substance: OMEPRAZOLE MAGNESIUM
     Dosage: 20 MG, QD
     Route: 065
     Dates: start: 2009, end: 20140813
  27. CELEBREX [Concomitant]
     Active Substance: CELECOXIB
     Dosage: 200 MG, QD
     Route: 065
     Dates: start: 20080120
  28. TRAMADOL HCL [Concomitant]
     Active Substance: TRAMADOL HYDROCHLORIDE
     Dosage: 1 DF, HS
     Dates: start: 20100701
  29. CRANBERRY JUICE [Concomitant]
     Active Substance: CRANBERRY JUICE
  30. ASA [Concomitant]
     Active Substance: ASPIRIN
     Dosage: 81 MG, HS
     Route: 065
     Dates: start: 20140729, end: 20141024
  31. CIPROFLOXACIN. [Concomitant]
     Active Substance: CIPROFLOXACIN

REACTIONS (1)
  - Urinary tract infection [Unknown]
